FAERS Safety Report 11342636 (Version 2)
Quarter: 2015Q3

REPORT INFORMATION
  Report Type: Spontaneous
  Country: CH (occurrence: FR)
  Receive Date: 20150805
  Receipt Date: 20150921
  Transmission Date: 20151125
  Serious: Yes (Other)
  Sender: FDA-Public Use
  Company Number: CH-LPDUSPRD-20150581

PATIENT
  Age: 30 Year
  Sex: Female
  Weight: 78 kg

DRUGS (12)
  1. FERO-GRAD VITAMINE C 500 [Concomitant]
     Dosage: 1 DOSAGE FORMS, 1 IN 1 D
     Route: 048
  2. CYANOCOBALAMIN. [Concomitant]
     Active Substance: CYANOCOBALAMIN
     Dosage: 1 MG, 1 IN 1 M
     Route: 030
  3. AZINC [Concomitant]
     Dosage: 2 DOSAGE FORMS, 2 IN 1 D
     Route: 065
  4. THIAMINE. [Concomitant]
     Active Substance: THIAMINE
     Dosage: 1 DOSAGE FORMS, 1 IN 1 D
     Route: 048
  5. CERNEVIT [Concomitant]
     Active Substance: VITAMINS
     Dosage: DOSE NOT PROVIDED
     Route: 065
  6. CREON [Concomitant]
     Active Substance: PANCRELIPASE AMYLASE\PANCRELIPASE LIPASE\PANCRELIPASE PROTEASE
     Dosage: 25000 IU THREE TIMES/DAY
     Route: 048
  7. VITAMIN D3 BON [Concomitant]
     Dosage: 200000 IU, 1 IN 2 M
     Route: 030
  8. FOLIC ACID. [Concomitant]
     Active Substance: FOLIC ACID
     Dosage: 0.4 MG, 1 IN 1 D
     Route: 048
  9. FERINJECT [Suspect]
     Active Substance: FERRIC CARBOXYMALTOSE
     Dosage: 2MG TEST DOSE/ 20MG DOSE
     Route: 041
     Dates: start: 20150610, end: 20150610
  10. DECAN [Concomitant]
     Active Substance: ZINC GLUCONATE
     Dosage: DOSE NOT PROVIDED
     Route: 065
  11. TARDYFERON [Concomitant]
     Active Substance: FERROUS SULFATE\FOLIC ACID
     Dosage: 1 DOSAGE FORM, 1 IN 1 D
     Route: 048
  12. CALCIPRAT [Concomitant]
     Dosage: 1 DOSAGE FORMS, 1 IN 1 D
     Route: 048

REACTIONS (7)
  - Malaise [Unknown]
  - Hypertension [Unknown]
  - Tremor [Unknown]
  - Depressed level of consciousness [Unknown]
  - Tinnitus [Unknown]
  - Paraesthesia [Unknown]
  - Syncope [Unknown]

NARRATIVE: CASE EVENT DATE: 20150610
